FAERS Safety Report 5856440-7 (Version None)
Quarter: 2008Q3

REPORT INFORMATION
  Report Type: 
  Country: None (occurrence: None)
  Receive Date: 20080825
  Receipt Date: 20080501
  Transmission Date: 20090109
  Serious: No
  Sender: FDA-Public Use
  Company Number: A0725848A

PATIENT
  Age: 86 Year
  Sex: Female

DRUGS (8)
  1. VERAMYST [Suspect]
     Dosage: 1SPR PER DAY
     Route: 045
     Dates: start: 20080901
  2. STATINS [Concomitant]
  3. COREG [Concomitant]
  4. HEART MEDICATION [Concomitant]
  5. PLAVIX [Concomitant]
  6. IMDUR [Concomitant]
  7. NORVASC [Concomitant]
  8. METFORMIN [Concomitant]

REACTIONS (2)
  - ASTHENOPIA [None]
  - VISION BLURRED [None]
